FAERS Safety Report 18457381 (Version 1)
Quarter: 2020Q4

REPORT INFORMATION
  Report Type: Spontaneous
  Country: US (occurrence: US)
  Receive Date: 20201103
  Receipt Date: 20201103
  Transmission Date: 20210114
  Serious: Yes (Other)
  Sender: FDA-Public Use
  Company Number: US-TARO-2020TAR01631

PATIENT
  Age: 62 Year
  Sex: Male

DRUGS (1)
  1. CARBAMAZEPINE. [Suspect]
     Active Substance: CARBAMAZEPINE
     Indication: TREMOR
     Dosage: UNK
     Route: 065

REACTIONS (5)
  - Fall [Unknown]
  - Gait disturbance [Unknown]
  - Drug ineffective [Unknown]
  - Off label use [Unknown]
  - Thrombocytopenia [Recovered/Resolved]
